FAERS Safety Report 9452487 (Version 1)
Quarter: 2013Q3

REPORT INFORMATION
  Report Type: Spontaneous
  Country: US (occurrence: None)
  Receive Date: 20130808
  Receipt Date: 20130808
  Transmission Date: 20140515
  Serious: Yes (Disabling, Other)
  Sender: FDA-Public Use
  Company Number: None

PATIENT
  Age: 50 Year
  Sex: Female
  Weight: 81.65 kg

DRUGS (1)
  1. TECFIDERA [Suspect]
     Dosage: 1 CAPSULE, TWICE DAILY, TAKEN BY MOUTH
     Route: 048
     Dates: start: 20130726, end: 20130730

REACTIONS (10)
  - Nausea [None]
  - Abdominal pain upper [None]
  - Abdominal pain [None]
  - Abdominal distension [None]
  - Sleep disorder [None]
  - Pain [None]
  - Bedridden [None]
  - Influenza like illness [None]
  - Gait disturbance [None]
  - Muscle spasticity [None]
